FAERS Safety Report 19169442 (Version 2)
Quarter: 2022Q2

REPORT INFORMATION
  Report Type: Report from Study
  Country: US (occurrence: US)
  Receive Date: 20210422
  Receipt Date: 20220418
  Transmission Date: 20220721
  Serious: No
  Sender: FDA-Public Use
  Company Number: US-NOVARTISTESTPH-NVSC2021US089253

PATIENT
  Sex: Female

DRUGS (1)
  1. XIIDRA [Suspect]
     Active Substance: LIFITEGRAST
     Indication: Product used for unknown indication
     Dosage: UNK
     Route: 065

REACTIONS (7)
  - Taste disorder [Unknown]
  - Pain [Unknown]
  - Strabismus [Unknown]
  - Myopia [Unknown]
  - Drug hypersensitivity [Unknown]
  - Dry eye [Unknown]
  - Headache [Unknown]
